FAERS Safety Report 6054055-1 (Version None)
Quarter: 2009Q1

REPORT INFORMATION
  Report Type: 
  Country: None (occurrence: None)
  Receive Date: 20090127
  Receipt Date: 20081212
  Transmission Date: 20090719
  Serious: Yes (Hospitalization)
  Sender: FDA-Public Use
  Company Number: US-PFIZER INC-2006072852

PATIENT
  Sex: Male
  Weight: 69.5 kg

DRUGS (9)
  1. BLINDED *EFAVIRENZ [Suspect]
     Indication: HIV TEST POSITIVE
     Dosage: UNK
     Route: 048
     Dates: start: 20050830, end: 20060313
  2. BLINDED *PLACEBO [Suspect]
     Indication: HIV TEST POSITIVE
     Dosage: UNK
     Route: 048
     Dates: start: 20050830, end: 20060313
  3. BLINDED MARAVIROC [Suspect]
     Indication: HIV TEST POSITIVE
     Dosage: UNK
     Route: 048
     Dates: start: 20050830, end: 20060313
  4. COMBIVIR [Suspect]
     Indication: HIV TEST POSITIVE
     Dosage: 2 TABLETS
     Route: 048
     Dates: start: 20050830, end: 20060313
  5. BACTRIM DS [Concomitant]
     Route: 048
     Dates: start: 20050713
  6. NORVASC [Concomitant]
     Route: 048
     Dates: start: 20050803
  7. ZIDOVUDINE [Concomitant]
     Route: 048
     Dates: start: 20060417
  8. KALETRA [Concomitant]
     Route: 048
     Dates: start: 20060417
  9. VIREAD [Concomitant]
     Route: 048
     Dates: start: 20060417

REACTIONS (1)
  - CELLULITIS [None]
